FAERS Safety Report 10018928 (Version 1)
Quarter: 2014Q1

REPORT INFORMATION
  Report Type: Spontaneous
  Country: US (occurrence: US)
  Receive Date: 20140318
  Receipt Date: 20140318
  Transmission Date: 20141002
  Serious: Yes (Hospitalization)
  Sender: FDA-Public Use
  Company Number: US-GLAXOSMITHKLINE-A1064321A

PATIENT
  Age: 52 Year
  Sex: Female

DRUGS (7)
  1. ADVAIR [Suspect]
     Indication: CHRONIC OBSTRUCTIVE PULMONARY DISEASE
     Dosage: 1PUFF TWICE PER DAY
     Route: 055
     Dates: start: 201402
  2. SPIRIVA [Concomitant]
  3. CLARITIN [Concomitant]
  4. ALBUTEROL [Concomitant]
  5. AMLODIPINE [Concomitant]
  6. OXYGEN [Concomitant]
  7. UNKNOWN [Concomitant]

REACTIONS (2)
  - Pneumonia [Recovering/Resolving]
  - Malaise [Recovering/Resolving]
